FAERS Safety Report 23607291 (Version 2)
Quarter: 2024Q2

REPORT INFORMATION
  Report Type: Spontaneous
  Country: US (occurrence: US)
  Receive Date: 20240307
  Receipt Date: 20240401
  Transmission Date: 20240716
  Serious: No
  Sender: FDA-Public Use
  Company Number: US-INCYTE CORPORATION-2024IN002157

PATIENT

DRUGS (2)
  1. JAKAFI [Suspect]
     Active Substance: RUXOLITINIB
     Indication: Autoimmune neutropenia
     Dosage: 2.5 MILLIGRAM, BID
     Route: 048
     Dates: start: 20240306
  2. JAKAFI [Suspect]
     Active Substance: RUXOLITINIB
     Indication: Chronic graft versus host disease

REACTIONS (2)
  - Wrong technique in product usage process [Unknown]
  - Off label use [Unknown]
